FAERS Safety Report 8305859-3 (Version None)
Quarter: 2012Q2

REPORT INFORMATION
  Report Type: 
  Country: None (occurrence: None)
  Receive Date: 20120418
  Receipt Date: 20120404
  Transmission Date: 20120825
  Serious: Yes (Hospitalization)
  Sender: FDA-Public Use
  Company Number: US-2011-10427

PATIENT
  Age: 49 Year
  Sex: Male

DRUGS (4)
  1. DOXYCLIN (DOXYCYCLINE HYCLATE) [Concomitant]
  2. OPC-41061 (TOLVAPTAN) TABLET, 15MG MILLIGRAM(S) [Suspect]
     Indication: CONGENITAL CYSTIC KIDNEY DISEASE
     Dosage: 45/15MG SPLIT DOSE, ORAL
     Route: 048
     Dates: start: 20110301
  3. FOLIC ACID [Concomitant]
  4. ALLOPURINOL [Concomitant]

REACTIONS (25)
  - NERVE CONDUCTION STUDIES ABNORMAL [None]
  - MIGRAINE [None]
  - PROSTATOMEGALY [None]
  - EOSINOPHIL PERCENTAGE INCREASED [None]
  - RED BLOOD CELL SEDIMENTATION RATE DECREASED [None]
  - PLATELET COUNT DECREASED [None]
  - PERIPHERAL SENSORIMOTOR NEUROPATHY [None]
  - DEMYELINATING POLYNEUROPATHY [None]
  - EXOSTOSIS [None]
  - BLOOD GLUCOSE DECREASED [None]
  - TREATMENT NONCOMPLIANCE [None]
  - MEAN CELL HAEMOGLOBIN DECREASED [None]
  - BLOOD FIBRINOGEN INCREASED [None]
  - ARTHROPATHY [None]
  - PROTEIN TOTAL DECREASED [None]
  - MEAN CELL HAEMOGLOBIN CONCENTRATION DECREASED [None]
  - POLYNEUROPATHY [None]
  - HYPERURICAEMIA [None]
  - MUSCLE DISORDER [None]
  - FOOT DEFORMITY [None]
  - CSF PROTEIN INCREASED [None]
  - HEPATOSPLENOMEGALY [None]
  - C-REACTIVE PROTEIN INCREASED [None]
  - FOLATE DEFICIENCY [None]
  - AXONAL NEUROPATHY [None]
